FAERS Safety Report 15755254 (Version 1)
Quarter: 2018Q4

REPORT INFORMATION
  Report Type: Spontaneous
  Country: US (occurrence: US)
  Receive Date: 20181221
  Receipt Date: 20181221
  Transmission Date: 20190205
  Serious: Yes (Death)
  Sender: FDA-Public Use
  Company Number: None

PATIENT
  Age: 22 Week
  Sex: Male
  Weight: 74.25 kg

DRUGS (1)
  1. ACCUTANE [Suspect]
     Active Substance: ISOTRETINOIN
     Dates: start: 20081001, end: 20081011

REACTIONS (2)
  - Psychotic disorder [None]
  - Completed suicide [None]

NARRATIVE: CASE EVENT DATE: 20081010
